FAERS Safety Report 20369691 (Version 3)
Quarter: 2022Q1

REPORT INFORMATION
  Report Type: Spontaneous
  Country: JP (occurrence: JP)
  Receive Date: 20220124
  Receipt Date: 20220211
  Transmission Date: 20220423
  Serious: Yes (Life-Threatening, Hospitalization, Other)
  Sender: FDA-Public Use
  Company Number: JP-CHUGAI-2022000435

PATIENT
  Age: 72 Year
  Sex: Female
  Weight: 54.3 kg

DRUGS (3)
  1. TECENTRIQ [Suspect]
     Active Substance: ATEZOLIZUMAB
     Indication: Triple negative breast cancer
     Dosage: UNK, LAST DOSE ADMINISTERED ON /AUG/2021
     Route: 041
     Dates: start: 20200923, end: 20210818
  2. DOCETAXEL [Suspect]
     Active Substance: DOCETAXEL
     Indication: Triple negative breast cancer
     Dosage: UNK
     Route: 041
     Dates: start: 20200923, end: 20210118
  3. PACLITAXEL [Concomitant]
     Active Substance: PACLITAXEL
     Indication: Triple negative breast cancer
     Route: 041

REACTIONS (4)
  - Adrenal insufficiency [Recovering/Resolving]
  - Cellulitis [Recovered/Resolved]
  - Sepsis [Unknown]
  - Muscle abscess [Unknown]

NARRATIVE: CASE EVENT DATE: 20211101
